FAERS Safety Report 5252987-5 (Version None)
Quarter: 2007Q1

REPORT INFORMATION
  Report Type: 
  Country: None (occurrence: None)
  Receive Date: 20070227
  Receipt Date: 20070209
  Transmission Date: 20070707
  Serious: Yes (Other)
  Sender: FDA-Public Use
  Company Number: 15680

PATIENT
  Age: 59 Year
  Sex: Female

DRUGS (3)
  1. MORPHINE [Suspect]
     Dosage: 0.6 MG ONCE IT
     Route: 038
  2. MIDAZOLAM HCL [Concomitant]
  3. BUPIVACAINE [Concomitant]

REACTIONS (5)
  - DRUG TOXICITY [None]
  - NAUSEA [None]
  - NYSTAGMUS [None]
  - VISION BLURRED [None]
  - VOMITING [None]
